APPROVED DRUG PRODUCT: ADVIL COLD AND SINUS
Active Ingredient: IBUPROFEN; PSEUDOEPHEDRINE HYDROCHLORIDE
Strength: 200MG;30MG
Dosage Form/Route: TABLET;ORAL
Application: N019771 | Product #001
Applicant: HALEON US HOLDINGS LLC
Approved: Sep 19, 1989 | RLD: Yes | RS: Yes | Type: OTC